FAERS Safety Report 7407722-9 (Version None)
Quarter: 2011Q2

REPORT INFORMATION
  Report Type: 
  Country: None (occurrence: None)
  Receive Date: 20110401
  Receipt Date: 20110321
  Transmission Date: 20111010
  Serious: Yes (Hospitalization)
  Sender: FDA-Public Use
  Company Number: 2011SP013263

PATIENT
  Age: 60 Year
  Sex: Male

DRUGS (25)
  1. NOXAFIL [Suspect]
     Indication: ANTIFUNGAL PROPHYLAXIS
     Dosage: PO
     Route: 048
     Dates: start: 20101222, end: 20110208
  2. TIENAM [Concomitant]
  3. CIFLOX [Concomitant]
  4. DELURSAN [Concomitant]
  5. AMBISOME [Suspect]
     Indication: ANTIFUNGAL PROPHYLAXIS
     Dosage: 200 MG;QD;IV
     Route: 042
     Dates: start: 20110105, end: 20110208
  6. GRANOCYTE [Concomitant]
  7. IONOK+KCL (GALENIC/POTASSIUM CHLORIDE/GLUCOSE) [Concomitant]
  8. VFEND [Concomitant]
  9. SERESTA [Concomitant]
  10. TAVANIC [Concomitant]
  11. ACUPAN [Concomitant]
  12. ZOVIRAX [Concomitant]
  13. HEPARIN [Concomitant]
  14. VANCOMYCINE [Concomitant]
  15. ZELITREX [Concomitant]
  16. KEPPRA [Concomitant]
  17. STILNOX [Concomitant]
  18. SULFARLEM [Concomitant]
  19. FORTUM [Concomitant]
  20. PHOCYTAN [Concomitant]
  21. LOXEN [Concomitant]
  22. MOPRAL [Concomitant]
  23. PERFALGAN [Concomitant]
  24. MG [Concomitant]
  25. POTASSIUM CHLORIDE [Concomitant]

REACTIONS (8)
  - ASPERGILLUS TEST POSITIVE [None]
  - IATROGENIC INJURY [None]
  - APLASIA [None]
  - GENERAL PHYSICAL HEALTH DETERIORATION [None]
  - RENAL TUBULAR ACIDOSIS [None]
  - ASPERGILLOSIS [None]
  - ACUTE MYELOID LEUKAEMIA RECURRENT [None]
  - HAEMATURIA [None]
